FAERS Safety Report 8200591-9 (Version None)
Quarter: 2012Q1

REPORT INFORMATION
  Report Type: 
  Country: None (occurrence: None)
  Receive Date: 20120312
  Receipt Date: 20120301
  Transmission Date: 20120608
  Serious: Yes (Other)
  Sender: FDA-Public Use
  Company Number: US-SANOFI-AVENTIS-2012SA014361

PATIENT
  Age: 64 Year
  Sex: Female

DRUGS (1)
  1. AMBIEN CR [Suspect]

REACTIONS (2)
  - ROAD TRAFFIC ACCIDENT [None]
  - AMNESIA [None]
